FAERS Safety Report 10057979 (Version 1)
Quarter: 2014Q2

REPORT INFORMATION
  Report Type: Report from Study
  Country: GB (occurrence: GB)
  Receive Date: 20140404
  Receipt Date: 20140404
  Transmission Date: 20141212
  Serious: Yes (Hospitalization)
  Sender: FDA-Public Use
  Company Number: GB-ROCHE-1377978

PATIENT
  Age: 68 Year
  Sex: Female

DRUGS (12)
  1. RANIBIZUMAB [Suspect]
     Indication: AGE-RELATED MACULAR DEGENERATION
     Route: 050
     Dates: start: 20120131
  2. RANIBIZUMAB [Suspect]
     Route: 050
     Dates: start: 20131106
  3. ASPIRIN [Concomitant]
     Route: 065
     Dates: start: 2010
  4. ASPIRIN [Concomitant]
     Route: 065
     Dates: start: 20140106
  5. ATENOLOL [Concomitant]
     Route: 065
     Dates: start: 2002
  6. ATENOLOL [Concomitant]
     Route: 065
     Dates: start: 20140106
  7. FUROSEMIDE [Concomitant]
     Route: 065
     Dates: start: 2004
  8. FUROSEMIDE [Concomitant]
     Route: 065
     Dates: start: 20140106
  9. ATORVASTATIN [Concomitant]
     Route: 065
     Dates: start: 2004
  10. ATORVASTATIN [Concomitant]
     Route: 065
     Dates: start: 20140106
  11. ENALAPRIL [Concomitant]
     Route: 065
     Dates: start: 2011
  12. ENALAPRIL [Concomitant]
     Route: 065
     Dates: start: 20140106

REACTIONS (1)
  - Chest pain [Recovered/Resolved]
